FAERS Safety Report 8091633-2 (Version None)
Quarter: 2012Q1

REPORT INFORMATION
  Report Type: 
  Country: None (occurrence: None)
  Receive Date: 20120130
  Receipt Date: 20120130
  Transmission Date: 20120608
  Serious: Yes (Other)
  Sender: FDA-Public Use
  Company Number: None

PATIENT
  Age: 80 Year
  Sex: Male
  Weight: 85.2762 kg

DRUGS (2)
  1. LOSARTAN POTASSIUM [Suspect]
     Indication: HYPERTENSION
     Dosage: 25 MG 2 PER DAY ORAL
     Route: 048
     Dates: start: 20111214
  2. LOSARTAN POTASSIUM [Suspect]

REACTIONS (1)
  - BLOOD PRESSURE SYSTOLIC INCREASED [None]
